FAERS Safety Report 8847360 (Version 1)
Quarter: 2012Q4

REPORT INFORMATION
  Report Type: 
  Country: DE (occurrence: DE)
  Receive Date: 20121018
  Receipt Date: 20121018
  Transmission Date: 20130627
  Serious: Yes (Other)
  Sender: FDA-Public Use
  Company Number: DE-ASTRAZENECA-2012SE75557

PATIENT
  Sex: Female
  Weight: 60 kg

DRUGS (1)
  1. ARIMIDEX [Suspect]
     Indication: BREAST NEOPLASM
     Route: 048

REACTIONS (1)
  - Chronic fatigue syndrome [Not Recovered/Not Resolved]
